FAERS Safety Report 9201428 (Version 1)
Quarter: 2013Q2

REPORT INFORMATION
  Report Type: Spontaneous
  Country: IT (occurrence: IT)
  Receive Date: 20130401
  Receipt Date: 20130401
  Transmission Date: 20140414
  Serious: Yes (Hospitalization)
  Sender: FDA-Public Use
  Company Number: IT-PFIZER INC-2013102557

PATIENT
  Age: 51 Year
  Sex: Female

DRUGS (3)
  1. XANAX [Suspect]
     Dosage: 3.5 MG, TOTAL DOSE
     Dates: start: 20130322, end: 20130322
  2. LORAZEPAM [Concomitant]
     Dosage: 1 MG, UNK
  3. LYRICA [Concomitant]
     Dosage: 100 MG, UNK

REACTIONS (1)
  - Sopor [Recovered/Resolved]
